FAERS Safety Report 8006022-6 (Version None)
Quarter: 2011Q4

REPORT INFORMATION
  Report Type: 
  Country: None (occurrence: None)
  Receive Date: 20111226
  Receipt Date: 20111219
  Transmission Date: 20120403
  Serious: Yes (Hospitalization)
  Sender: FDA-Public Use
  Company Number: US-BIOGENIDEC-2011BI033637

PATIENT
  Age: 40 Year
  Sex: Female

DRUGS (2)
  1. TYSABRI [Suspect]
     Route: 042
     Dates: start: 20070530, end: 20080305
  2. TYSABRI [Suspect]
     Indication: MULTIPLE SCLEROSIS
     Route: 042
     Dates: start: 20090415

REACTIONS (7)
  - DRY SKIN [None]
  - MEMORY IMPAIRMENT [None]
  - MIGRAINE [None]
  - ULCER HAEMORRHAGE [None]
  - VISUAL IMPAIRMENT [None]
  - MUSCULOSKELETAL DISORDER [None]
  - ALOPECIA [None]
